FAERS Safety Report 16130179 (Version 1)
Quarter: 2019Q1

REPORT INFORMATION
  Report Type: Spontaneous
  Country: CA (occurrence: CA)
  Receive Date: 20190328
  Receipt Date: 20190328
  Transmission Date: 20190418
  Serious: Yes (Life-Threatening, Hospitalization, Other)
  Sender: FDA-Public Use
  Company Number: CA-JNJFOC-20190335217

PATIENT
  Age: 58 Year
  Sex: Male
  Weight: 47 kg

DRUGS (1)
  1. STELARA [Suspect]
     Active Substance: USTEKINUMAB
     Indication: PSORIASIS
     Route: 058

REACTIONS (14)
  - Nocardiosis [Recovered/Resolved]
  - Dyspnoea [Recovered/Resolved]
  - Hypoxia [Recovered/Resolved]
  - Renal vein thrombosis [Recovered/Resolved]
  - Chest X-ray abnormal [Recovered/Resolved]
  - Fatigue [Recovered/Resolved]
  - Hyperhidrosis [Recovered/Resolved]
  - Central nervous system lesion [Recovered/Resolved]
  - Haemoptysis [Recovered/Resolved]
  - Pulmonary mass [Recovered/Resolved]
  - Renal mass [Recovered/Resolved]
  - Pigmentation disorder [Recovered/Resolved]
  - Cachexia [Recovered/Resolved]
  - Skin mass [Recovered/Resolved]
